FAERS Safety Report 24272661 (Version 3)
Quarter: 2024Q4

REPORT INFORMATION
  Report Type: Spontaneous
  Country: US (occurrence: US)
  Receive Date: 20240902
  Receipt Date: 20241216
  Transmission Date: 20250114
  Serious: No
  Sender: ROCHE
  Company Number: US-ROCHE-10000067237

PATIENT
  Age: 44 Year
  Sex: Female

DRUGS (7)
  1. XOLAIR [Suspect]
     Active Substance: OMALIZUMAB
     Indication: Urticaria
     Dosage: ONGOING, STRENGTH:300MG/2ML
     Route: 058
     Dates: start: 20240825
  2. XOLAIR [Suspect]
     Active Substance: OMALIZUMAB
     Indication: Idiopathic urticaria
  3. XOLAIR PFS [Suspect]
     Active Substance: OMALIZUMAB
     Indication: Urticaria
     Route: 058
  4. XOLAIR PFS [Suspect]
     Active Substance: OMALIZUMAB
  5. ZYRTEC [Concomitant]
     Active Substance: CETIRIZINE HYDROCHLORIDE
     Dosage: TAKES AT LEAST TWICE A DAY IF NOT THREE TIMES A DAY AS NEEDED
     Route: 048
  6. FLONASE [Concomitant]
     Active Substance: FLUTICASONE PROPIONATE
     Dosage: AS NEEDED
     Route: 065
  7. PREDNISONE [Concomitant]
     Active Substance: PREDNISONE

REACTIONS (9)
  - Product dose omission issue [Unknown]
  - Pruritus [Not Recovered/Not Resolved]
  - Arthralgia [Not Recovered/Not Resolved]
  - Wrong technique in device usage process [Unknown]
  - Urticaria [Not Recovered/Not Resolved]
  - Product packaging quantity issue [Unknown]
  - Accidental exposure to product [Unknown]
  - Needle issue [Unknown]
  - Product preparation error [Unknown]

NARRATIVE: CASE EVENT DATE: 20240825
